FAERS Safety Report 4494189-6 (Version None)
Quarter: 2004Q4

REPORT INFORMATION
  Report Type: 
  Country: None (occurrence: None)
  Receive Date: 20041105
  Receipt Date: 20041025
  Transmission Date: 20050328
  Serious: Yes (Life-Threatening)
  Sender: FDA-Public Use
  Company Number: ES-ROCHE-384058

PATIENT
  Age: 48 Year
  Sex: Female

DRUGS (3)
  1. TORADOL [Suspect]
     Indication: DRUG USE FOR UNKNOWN INDICATION
     Route: 042
     Dates: start: 20040804, end: 20040804
  2. NOLOTIL [Suspect]
     Indication: DRUG USE FOR UNKNOWN INDICATION
     Dosage: STRENGTH REPORTED AS 2G/5ML.
     Route: 042
     Dates: start: 20040804, end: 20040804
  3. MEPIVACAINE HCL [Suspect]
     Indication: DRUG USE FOR UNKNOWN INDICATION
     Route: 062
     Dates: start: 20040804, end: 20040804

REACTIONS (2)
  - CONVULSION [None]
  - RESPIRATORY DEPRESSION [None]
